FAERS Safety Report 8846877 (Version 1)
Quarter: 2012Q4

REPORT INFORMATION
  Report Type: Spontaneous
  Country: US (occurrence: None)
  Receive Date: 20121016
  Receipt Date: 20121016
  Transmission Date: 20130627
  Serious: Yes (Hospitalization)
  Sender: FDA-Public Use
  Company Number: None

PATIENT
  Age: 61 Year
  Sex: Male

DRUGS (1)
  1. PIOGLITAZONE [Suspect]
     Route: 048
     Dates: start: 20120920, end: 20121001

REACTIONS (7)
  - Malaise [None]
  - Abdominal pain upper [None]
  - Nausea [None]
  - Vomiting [None]
  - Ocular icterus [None]
  - Liver disorder [None]
  - Product substitution issue [None]
